FAERS Safety Report 20121574 (Version 1)
Quarter: 2021Q4

REPORT INFORMATION
  Report Type: Spontaneous
  Country: US (occurrence: US)
  Receive Date: 20211128
  Receipt Date: 20211128
  Transmission Date: 20220303
  Serious: No
  Sender: FDA-Public Use
  Company Number: US-SA-SAC20211122000810

PATIENT
  Age: 56 Year
  Sex: Female

DRUGS (9)
  1. AUBAGIO [Suspect]
     Active Substance: TERIFLUNOMIDE
     Indication: Nicotine dependence
     Dosage: 14 MG, QD
     Route: 048
     Dates: end: 20211112
  2. ATORVASTATIN CALCIUM [Concomitant]
     Active Substance: ATORVASTATIN CALCIUM
  3. BENAZEPRIL [Concomitant]
     Active Substance: BENAZEPRIL HYDROCHLORIDE
  4. GABAPENTIN [Concomitant]
     Active Substance: GABAPENTIN
  5. HYDROCHLOROTHIAZIDE [Concomitant]
     Active Substance: HYDROCHLOROTHIAZIDE
  6. LANTUS [Concomitant]
     Active Substance: INSULIN GLARGINE
  7. MECLIZINE HYDROCHLORIDE [Concomitant]
     Active Substance: MECLIZINE HYDROCHLORIDE
  8. METFORMIN HYDROCHLORIDE [Concomitant]
     Active Substance: METFORMIN HYDROCHLORIDE
  9. ONDANSETRON [Concomitant]
     Active Substance: ONDANSETRON

REACTIONS (1)
  - Product use in unapproved indication [Unknown]
